FAERS Safety Report 4526961-8 (Version None)
Quarter: 2004Q4

REPORT INFORMATION
  Report Type: 
  Country: None (occurrence: None)
  Receive Date: 20041207
  Receipt Date: 20041118
  Transmission Date: 20050328
  Serious: Yes (Death)
  Sender: FDA-Public Use
  Company Number: D01200404475

PATIENT
  Age: 70 Year
  Sex: Female

DRUGS (21)
  1. RASBURICASE - SOLUTION - 0.2 MG/KG [Suspect]
     Indication: HYPERURICAEMIA
     Dosage: 0.2 MG/KG QD
     Route: 042
     Dates: start: 20040921, end: 20040923
  2. RASBURICASE - SOLUTION - 0.2 MG/KG [Suspect]
     Indication: TUMOUR LYSIS SYNDROME
     Dosage: 0.2 MG/KG QD
     Route: 042
     Dates: start: 20040921, end: 20040923
  3. ALLOPURINOL [Suspect]
     Dosage: 300 MG  QD
     Route: 048
     Dates: start: 20040923, end: 20040925
  4. VANCOMYCIN [Concomitant]
  5. FORTAZ (CEFTAZIDIME) [Concomitant]
  6. NAFCILLIN [Concomitant]
  7. ACYCLOVIR [Concomitant]
  8. SPORANOX [Concomitant]
  9. CIPROFLOXACIN [Concomitant]
  10. NEUPOGEN [Concomitant]
  11. PRIMAXIN [Concomitant]
  12. CANCIDAS [Concomitant]
  13. KYTRIL [Concomitant]
  14. COLACE (DOCUSATE SODIUM) [Concomitant]
  15. SENNA [Concomitant]
  16. HALDOL [Concomitant]
  17. ATIVAN [Concomitant]
  18. PHOSLO [Concomitant]
  19. REGLAN [Concomitant]
  20. BENADRYL [Concomitant]
  21. TYLENOL [Concomitant]

REACTIONS (10)
  - CARDIAC ARREST [None]
  - CHOLELITHIASIS [None]
  - GASTROINTESTINAL HAEMORRHAGE [None]
  - HEPATIC FAILURE [None]
  - HEPATOTOXICITY [None]
  - PLATELET COUNT DECREASED [None]
  - PULMONARY HAEMORRHAGE [None]
  - REFUSAL OF TREATMENT BY RELATIVE [None]
  - RENAL FAILURE [None]
  - SEPSIS [None]
